FAERS Safety Report 7826150-5 (Version None)
Quarter: 2011Q4

REPORT INFORMATION
  Report Type: 
  Country: None (occurrence: None)
  Receive Date: 20111019
  Receipt Date: 20111009
  Transmission Date: 20120403
  Serious: Yes (Life-Threatening)
  Sender: FDA-Public Use
  Company Number: US-BRISTOL-MYERS SQUIBB COMPANY-16163693

PATIENT
  Age: 51 Year
  Sex: Male

DRUGS (2)
  1. METFORMIN HCL [Suspect]
  2. OXYCODONE HCL AND ACETAMINOPHEN [Concomitant]

REACTIONS (4)
  - MEDICATION ERROR [None]
  - BLOOD GLUCOSE DECREASED [None]
  - ACCIDENTAL OVERDOSE [None]
  - LACTIC ACIDOSIS [None]
